FAERS Safety Report 5130308-6 (Version None)
Quarter: 2006Q4

REPORT INFORMATION
  Report Type: 
  Country: None (occurrence: None)
  Receive Date: 20061013
  Receipt Date: 20060926
  Transmission Date: 20070319
  Serious: Yes (Hospitalization)
  Sender: FDA-Public Use
  Company Number: US200608003645

PATIENT
  Sex: Female

DRUGS (10)
  1. FORTEO [Suspect]
     Dosage: 20 UG, DAILY (1/D),
     Dates: start: 20060801
  2. FORTEO [Concomitant]
  3. FLECAINIDE ACETATE [Concomitant]
  4. B-12 LATINO DEPOT (CYANOCOBALAMIN-TANNIN COMPLEX) [Concomitant]
  5. MIRALAX [Concomitant]
  6. DYNACIRC [Concomitant]
  7. DYNABAC (DIRITHROMYCIN) TABLET [Concomitant]
  8. ASA (ASPIRIN (ACETYLSALICYLIC ACID) [Concomitant]
  9. XALATAN /SWE/ (LATANOPROST) [Concomitant]
  10. BENICAR /USA/ (OLMESARTAN MEDOXOMIL) [Concomitant]

REACTIONS (11)
  - ASTHENIA [None]
  - CHEST PAIN [None]
  - ELECTROCARDIOGRAM T WAVE INVERSION [None]
  - HEART RATE INCREASED [None]
  - LETHARGY [None]
  - MALAISE [None]
  - MEDICAL DEVICE COMPLICATION [None]
  - PALPITATIONS [None]
  - PHARMACEUTICAL PRODUCT COMPLAINT [None]
  - URINARY TRACT INFECTION [None]
  - VENTRICULAR HYPERTROPHY [None]
